FAERS Safety Report 14303339 (Version 1)
Quarter: 2017Q4

REPORT INFORMATION
  Report Type: Spontaneous
  Country: US (occurrence: US)
  Receive Date: 20171219
  Receipt Date: 20171219
  Transmission Date: 20180321
  Serious: Yes (Disabling, Other)
  Sender: FDA-Public Use
  Company Number: US-OTSUKA-2015_006043

PATIENT
  Sex: Male
  Weight: 102 kg

DRUGS (5)
  1. ABILIFY [Suspect]
     Active Substance: ARIPIPRAZOLE
     Indication: BIPOLAR DISORDER
     Dosage: 5 MG, QD (LAST DOSE:MARCH 2013 BOTTLE  )
     Route: 065
  2. KLONOPIN [Concomitant]
     Active Substance: CLONAZEPAM
     Indication: BLOOD PRESSURE MEASUREMENT
     Dosage: UNK
     Route: 065
  3. ABILIFY [Suspect]
     Active Substance: ARIPIPRAZOLE
     Indication: SCHIZOPHRENIA
     Dosage: 10 TO 15 MG, UNK (LAST DOSE:MARCH 2013 BOTTLE)
     Route: 065
  4. ABILIFY [Suspect]
     Active Substance: ARIPIPRAZOLE
     Indication: ANXIETY
     Dosage: 15 MG, UNK (ST DOSE:MARCH 2013 BOTTLE)
     Route: 065
  5. ABILIFY [Suspect]
     Active Substance: ARIPIPRAZOLE
     Indication: DEPRESSION
     Dosage: UNK (LAST DOSE:MARCH 2013 BOTTLE)
     Route: 065

REACTIONS (10)
  - Learning disability [Recovered/Resolved]
  - Weight increased [Recovered/Resolved]
  - Off label use [Unknown]
  - Irritability [Unknown]
  - Drug ineffective [Unknown]
  - Tourette^s disorder [Recovered/Resolved]
  - Bipolar disorder [Recovered/Resolved]
  - Blood pressure increased [Unknown]
  - Speech disorder [Recovered/Resolved]
  - Schizophrenia [Recovered/Resolved]
